FAERS Safety Report 5837524-6 (Version None)
Quarter: 2008Q3

REPORT INFORMATION
  Report Type: 
  Country: None (occurrence: None)
  Receive Date: 20080807
  Receipt Date: 20080801
  Transmission Date: 20090109
  Serious: Yes (Death, Hospitalization)
  Sender: FDA-Public Use
  Company Number: TH-GILEAD-2008-0017290

PATIENT
  Age: 39 Year
  Sex: Male
  Weight: 67 kg

DRUGS (4)
  1. EMTRICITABINE/TENOFOVIR DISOPROXIL FUMARATE [Suspect]
     Route: 048
     Dates: start: 20070613, end: 20080713
  2. EFAVIRENZ [Suspect]
     Route: 048
     Dates: start: 20061220, end: 20080713
  3. COLCHICINE [Concomitant]
  4. ALLOPURINOL [Concomitant]

REACTIONS (1)
  - CHOLECYSTITIS [None]
